FAERS Safety Report 18655366 (Version 2)
Quarter: 2020Q4

REPORT INFORMATION
  Report Type: Report from Study
  Country: AU (occurrence: AU)
  Receive Date: 20201223
  Receipt Date: 20201224
  Transmission Date: 20210114
  Serious: Yes (Death, Hospitalization)
  Sender: FDA-Public Use
  Company Number: AU-ROCHE-2734417

PATIENT
  Age: 90 Year
  Sex: Male
  Weight: 86.9 kg

DRUGS (8)
  1. ATEZOLIZUMAB. [Suspect]
     Active Substance: ATEZOLIZUMAB
     Indication: HORMONE-REFRACTORY PROSTATE CANCER
     Route: 041
     Dates: start: 20201104
  2. MICARDIS [Concomitant]
     Active Substance: TELMISARTAN
  3. PANADOL [Concomitant]
     Active Substance: ACETAMINOPHEN
  4. TRAMADOL. [Concomitant]
     Active Substance: TRAMADOL
  5. ADVIL [Concomitant]
     Active Substance: IBUPROFEN
  6. CALTRATE [Concomitant]
     Active Substance: CALCIUM CARBONATE
  7. INDOCIN [Concomitant]
     Active Substance: INDOMETHACIN
  8. XL184 [Suspect]
     Active Substance: CABOZANTINIB
     Indication: HORMONE-REFRACTORY PROSTATE CANCER
     Dosage: ON 17/NOV/2020, THE PATIENT RECEIVED MOST RECENT DOSE OF CABOZANTINIB TAKEN PRIOR TO THE EVENTS.
     Route: 048
     Dates: start: 20201104

REACTIONS (5)
  - Periorbital infection [Fatal]
  - Fall [Unknown]
  - Acute myocardial infarction [Recovered/Resolved]
  - Pyrexia [Recovered/Resolved]
  - Febrile neutropenia [Fatal]

NARRATIVE: CASE EVENT DATE: 20201118
